FAERS Safety Report 6322851-9 (Version None)
Quarter: 2009Q3

REPORT INFORMATION
  Report Type: 
  Country: None (occurrence: None)
  Receive Date: 20090824
  Receipt Date: 20090817
  Transmission Date: 20100115
  Serious: Yes (Disabling)
  Sender: FDA-Public Use
  Company Number: PHHY2009GB34767

PATIENT
  Age: 64 Year
  Sex: Female

DRUGS (6)
  1. ZOMETA [Suspect]
     Indication: METASTASES TO BONE
     Dosage: 4 DF, UNK
     Route: 048
     Dates: start: 20071001, end: 20080401
  2. ZOMETA [Suspect]
     Indication: BREAST CANCER METASTATIC
  3. ATENOLOL [Concomitant]
  4. ATORVASTATIN [Concomitant]
  5. CHEMOTHERAPEUTICS NOS [Concomitant]
     Dosage: UNK
     Dates: start: 20071001, end: 20090201
  6. TAMOXIFEN CITRATE [Concomitant]

REACTIONS (1)
  - OSTEONECROSIS [None]
